FAERS Safety Report 8147860-9 (Version None)
Quarter: 2012Q1

REPORT INFORMATION
  Report Type: 
  Country: None (occurrence: None)
  Receive Date: 20120218
  Receipt Date: 20110323
  Transmission Date: 20120608
  Serious: No
  Sender: FDA-Public Use
  Company Number: US-ALLERGAN-1104174US

PATIENT
  Age: 34 Year
  Sex: Female
  Weight: 54.422 kg

DRUGS (4)
  1. THERMOGENIC FAT BURNER [Concomitant]
  2. NUMBING CREAM [Concomitant]
  3. AMBIEN [Concomitant]
     Indication: SLEEP DISORDER
     Dosage: 10 MG, PRN
     Route: 048
  4. BOTOX COSMETIC [Suspect]
     Indication: SKIN WRINKLING
     Dosage: UNK
     Dates: start: 20101230, end: 20101230

REACTIONS (2)
  - MIGRAINE [None]
  - MALAISE [None]
